FAERS Safety Report 9319766 (Version 1)
Quarter: 2013Q2

REPORT INFORMATION
  Report Type: Spontaneous
  Country: US (occurrence: None)
  Receive Date: 20130529
  Receipt Date: 20130529
  Transmission Date: 20140414
  Serious: Yes (Life-Threatening, Disabling, Other)
  Sender: FDA-Public Use
  Company Number: None

PATIENT
  Age: 80 Year
  Sex: Female
  Weight: 43.55 kg

DRUGS (1)
  1. OXYBUTYNIN [Suspect]
     Indication: URINARY INCONTINENCE
     Route: 048
     Dates: start: 20110515, end: 20130411

REACTIONS (15)
  - Neuralgia [None]
  - Muscular weakness [None]
  - Dysphonia [None]
  - Resting tremor [None]
  - Cachexia [None]
  - Nausea [None]
  - Amnesia [None]
  - Tachycardia [None]
  - Vertigo [None]
  - Weight decreased [None]
  - Sensorimotor disorder [None]
  - Electromyogram abnormal [None]
  - Asthenia [None]
  - Serum serotonin increased [None]
  - Decreased appetite [None]
